FAERS Safety Report 9519025 (Version 1)
Quarter: 2013Q3

REPORT INFORMATION
  Report Type: Spontaneous
  Country: JP (occurrence: None)
  Receive Date: 20130910
  Receipt Date: 20130910
  Transmission Date: 20140515
  Serious: Yes (Death, Life-Threatening)
  Sender: FDA-Public Use
  Company Number: JP-012865

PATIENT
  Age: 80 Year
  Sex: Male

DRUGS (2)
  1. GONAX [Suspect]
     Indication: PROSTATE CANCER
     Dosage: TOTAL
     Route: 058
     Dates: start: 201308
  2. ZOSYN [Concomitant]

REACTIONS (3)
  - Renal failure [None]
  - Metastasis [None]
  - Concomitant disease aggravated [None]
